FAERS Safety Report 8620926-2 (Version None)
Quarter: 2012Q3

REPORT INFORMATION
  Report Type: 
  Country: None (occurrence: None)
  Receive Date: 20120824
  Receipt Date: 20120817
  Transmission Date: 20120928
  Serious: Yes (Other)
  Sender: FDA-Public Use
  Company Number: FR-PFIZER INC-2012201595

PATIENT
  Age: 25 Year
  Sex: Male

DRUGS (2)
  1. EFFEXOR XR [Suspect]
     Indication: DEPRESSION
     Dosage: 75 MG, 1 DF 1X/DAY IN THE MORNING
     Route: 048
     Dates: start: 20120517, end: 20120716
  2. EFFEXOR XR [Suspect]
     Dosage: 37.5 MG, IN THE MORNING
     Dates: start: 20120716

REACTIONS (2)
  - AGEUSIA [None]
  - WEIGHT DECREASED [None]
